FAERS Safety Report 7287977-4 (Version None)
Quarter: 2011Q1

REPORT INFORMATION
  Report Type: 
  Country: None (occurrence: None)
  Receive Date: 20110211
  Receipt Date: 20110202
  Transmission Date: 20110831
  Serious: Yes (Other)
  Sender: FDA-Public Use
  Company Number: GB-EISAI INC-E3810-04444-SPO-GB

PATIENT
  Age: 69 Year
  Sex: Female
  Weight: 55 kg

DRUGS (5)
  1. QUININE SULFATE [Concomitant]
  2. ZOLPIDEM TARTRATE [Concomitant]
  3. PARIET (RABEPRAZOLE) [Suspect]
     Route: 048
     Dates: start: 20100601, end: 20101026
  4. LEVOTHYROXINE SODIUM [Concomitant]
  5. TRAVOPROST [Concomitant]

REACTIONS (2)
  - BLOOD CREATININE INCREASED [None]
  - TUBULOINTERSTITIAL NEPHRITIS [None]
